FAERS Safety Report 6738877-7 (Version None)
Quarter: 2010Q2

REPORT INFORMATION
  Report Type: 
  Country: None (occurrence: None)
  Receive Date: 20100520
  Receipt Date: 20100506
  Transmission Date: 20101027
  Serious: Yes (Other)
  Sender: FDA-Public Use
  Company Number: DSA_43128_2010

PATIENT
  Age: 59 Year
  Sex: Male

DRUGS (1)
  1. DILTIAZEM HYDROCHLORIDE [Suspect]
     Indication: SCLERODERMA
     Dosage: DF ORAL
     Route: 048
     Dates: start: 20061101, end: 20091021

REACTIONS (4)
  - CHOLESTASIS [None]
  - CYTOLYTIC HEPATITIS [None]
  - HEPATIC NECROSIS [None]
  - HEPATIC STEATOSIS [None]
